FAERS Safety Report 4395854-1 (Version None)
Quarter: 2004Q3

REPORT INFORMATION
  Report Type: 
  Country: None (occurrence: None)
  Receive Date: 20040707
  Receipt Date: 20040623
  Transmission Date: 20050211
  Serious: Yes (Hospitalization)
  Sender: FDA-Public Use
  Company Number: FR-JNJFOC-20040606370

PATIENT
  Age: 64 Year
  Sex: Female

DRUGS (3)
  1. ZALDIAR (TRAMADOL/APAP) UNSPECIFIED [Suspect]
     Indication: BACK PAIN
     Dosage: UNKNOWN
     Route: 065
     Dates: start: 20040315, end: 20040428
  2. PROFENID (KETOPROFEN) UNKNOWN [Suspect]
     Indication: BACK PAIN
     Dosage: UNKNOWN
     Route: 065
     Dates: start: 20040315, end: 20040428
  3. COTAREG (CO-DIOVAN) [Suspect]
     Indication: HYPERTENSION
     Dosage: 1 DOSE (S), ORAL
     Route: 048

REACTIONS (4)
  - ANOREXIA [None]
  - HEADACHE [None]
  - HYPONATRAEMIA [None]
  - VOMITING [None]
